FAERS Safety Report 8511900-5 (Version None)
Quarter: 2012Q3

REPORT INFORMATION
  Report Type: 
  Country: None (occurrence: None)
  Receive Date: 20120716
  Receipt Date: 20120706
  Transmission Date: 20120928
  Serious: Yes (Life-Threatening, Hospitalization)
  Sender: FDA-Public Use
  Company Number: CA-PFIZER INC-2012168001

PATIENT
  Age: 72 Year
  Sex: Female
  Weight: 53 kg

DRUGS (5)
  1. ADALAT [Concomitant]
  2. METOPROLOL [Concomitant]
  3. PANTOPRAZOLE SODIUM [Suspect]
     Dosage: UNK
     Route: 065
  4. LANTUS [Concomitant]
     Route: 058
  5. SYNTHROID [Concomitant]

REACTIONS (3)
  - HYPOKALAEMIA [None]
  - HYPOMAGNESAEMIA [None]
  - ATRIAL FIBRILLATION [None]
